FAERS Safety Report 12724257 (Version 1)
Quarter: 2016Q3

REPORT INFORMATION
  Report Type: Report from Study
  Country: ES (occurrence: ES)
  Receive Date: 20160908
  Receipt Date: 20160908
  Transmission Date: 20161109
  Serious: Yes (Life-Threatening, Hospitalization)
  Sender: FDA-Public Use
  Company Number: ES-PFIZER INC-2016417217

PATIENT
  Age: 55 Year
  Sex: Female

DRUGS (5)
  1. TRANGOREX [Suspect]
     Active Substance: AMIODARONE HYDROCHLORIDE
     Indication: ATRIAL FIBRILLATION
     Dosage: 600 MG, DAILY
     Route: 048
     Dates: start: 201401, end: 20140702
  2. VALSARTAN. [Concomitant]
     Active Substance: VALSARTAN
     Indication: HYPERTENSION
     Dosage: UNK
     Route: 065
     Dates: end: 20140702
  3. PRADAXA [Interacting]
     Active Substance: DABIGATRAN ETEXILATE MESYLATE
     Indication: ATRIAL FIBRILLATION
     Dosage: 220 MG, DAILY
     Route: 048
     Dates: start: 201401, end: 20140702
  4. URSOBILANE [Concomitant]
     Indication: LIVER DISORDER
     Dosage: UNK
     Route: 065
     Dates: end: 20140702
  5. EPLERENONE. [Concomitant]
     Active Substance: EPLERENONE
     Indication: CARDIAC FAILURE
     Dosage: UNK
     Route: 065
     Dates: end: 20140702

REACTIONS (3)
  - Abdominal pain [Recovering/Resolving]
  - Drug interaction [Recovering/Resolving]
  - Peritoneal haemorrhage [Recovering/Resolving]

NARRATIVE: CASE EVENT DATE: 20140627
